FAERS Safety Report 21435889 (Version 1)
Quarter: 2022Q4

REPORT INFORMATION
  Report Type: Spontaneous
  Country: PA (occurrence: PA)
  Receive Date: 20221010
  Receipt Date: 20221010
  Transmission Date: 20230113
  Serious: Yes (Death, Other)
  Sender: FDA-Public Use
  Company Number: PA-NOVARTISPH-NVSC2022PA228146

PATIENT
  Age: 23 Year
  Sex: Male
  Weight: 85 kg

DRUGS (3)
  1. QUETIAPINE [Suspect]
     Active Substance: QUETIAPINE
     Indication: Schizophrenia
     Dosage: 800 MG (6 OR 8 MONTHS)
     Route: 065
     Dates: start: 202011
  2. FLUOXETINE [Concomitant]
     Active Substance: FLUOXETINE HYDROCHLORIDE
     Indication: Product used for unknown indication
     Dosage: 20 MG (1 TABLET IN THE  MORNING AND HALF A TABLET AT NIGHT)
     Route: 065
     Dates: end: 202012
  3. LEVOMEPROMAZINE [Concomitant]
     Active Substance: LEVOMEPROMAZINE
     Indication: Product used for unknown indication
     Dosage: 25MG EVERY 24 HOURS AT NIGHT
     Route: 065
     Dates: end: 202012

REACTIONS (1)
  - Pulmonary embolism [Fatal]
